FAERS Safety Report 4479495-3 (Version None)
Quarter: 2004Q4

REPORT INFORMATION
  Report Type: 
  Country: None (occurrence: None)
  Receive Date: 20041015
  Receipt Date: 20041001
  Transmission Date: 20050328
  Serious: Yes (Hospitalization)
  Sender: FDA-Public Use
  Company Number: 205631

PATIENT
  Age: 54 Year
  Sex: Female
  Weight: 124.7392 kg

DRUGS (6)
  1. AVONEX [Suspect]
     Indication: MULTIPLE SCLEROSIS
     Dosage: 30 MCG QW IM
     Route: 030
     Dates: start: 20040301
  2. ALBUTEROL [Concomitant]
  3. HYDROCHLOROTHIAZIDE [Concomitant]
  4. METHADONE HCL [Concomitant]
  5. PRILOSEC [Concomitant]
  6. IBUPROFEN [Concomitant]

REACTIONS (3)
  - BODY FAT DISORDER [None]
  - SKIN IRRITATION [None]
  - WEIGHT DECREASED [None]
